FAERS Safety Report 13912164 (Version 1)
Quarter: 2017Q3

REPORT INFORMATION
  Report Type: Spontaneous
  Country: US (occurrence: US)
  Receive Date: 20170828
  Receipt Date: 20170828
  Transmission Date: 20171127
  Serious: No
  Sender: FDA-Public Use
  Company Number: US-ROCHE-1142455

PATIENT
  Sex: Male

DRUGS (2)
  1. NUTROPIN [Suspect]
     Active Substance: SOMATROPIN
     Indication: PRODUCT USED FOR UNKNOWN INDICATION
     Dosage: 10 MG/2 CC, 0.46 CC
     Route: 058
     Dates: end: 19981228
  2. NUTROPIN [Suspect]
     Active Substance: SOMATROPIN
     Route: 065
     Dates: start: 199903, end: 19990314

REACTIONS (4)
  - Headache [Unknown]
  - Dizziness [Unknown]
  - Head discomfort [Unknown]
  - Ocular vascular disorder [Unknown]
